FAERS Safety Report 18557429 (Version 1)
Quarter: 2020Q4

REPORT INFORMATION
  Report Type: Spontaneous
  Country: SE (occurrence: SE)
  Receive Date: 20201129
  Receipt Date: 20201129
  Transmission Date: 20210114
  Serious: Yes (Other)
  Sender: FDA-Public Use
  Company Number: SE-ROCHE-2714450

PATIENT
  Sex: Female

DRUGS (3)
  1. SENDOXAN [Suspect]
     Active Substance: CYCLOPHOSPHAMIDE
     Indication: PRODUCT USED FOR UNKNOWN INDICATION
     Route: 065
  2. FLUDARA [Suspect]
     Active Substance: FLUDARABINE PHOSPHATE
     Indication: PRODUCT USED FOR UNKNOWN INDICATION
     Route: 048
  3. MABTHERA [Suspect]
     Active Substance: RITUXIMAB
     Indication: PRODUCT USED FOR UNKNOWN INDICATION
     Route: 041

REACTIONS (20)
  - Dry eye [Unknown]
  - Joint swelling [Unknown]
  - Alopecia [Unknown]
  - Oral mucosal blistering [Unknown]
  - Pyrexia [Unknown]
  - Fatigue [Unknown]
  - Haemoglobin decreased [Unknown]
  - White blood cell count decreased [Unknown]
  - Hypoacusis [Unknown]
  - Musculoskeletal chest pain [Unknown]
  - Haemolysis [Unknown]
  - Respiratory tract infection [Unknown]
  - Cough [Unknown]
  - Oropharyngeal pain [Unknown]
  - Nausea [Recovering/Resolving]
  - Decreased appetite [Unknown]
  - Abdominal pain upper [Unknown]
  - Neck pain [Unknown]
  - Paraesthesia [Recovering/Resolving]
  - Nasal congestion [Unknown]

NARRATIVE: CASE EVENT DATE: 200606
